FAERS Safety Report 5389168-0 (Version None)
Quarter: 2007Q3

REPORT INFORMATION
  Report Type: 
  Country: None (occurrence: None)
  Receive Date: 20070713
  Receipt Date: 20070713
  Transmission Date: 20080115
  Serious: Yes (Other)
  Sender: FDA-Public Use
  Company Number: None

PATIENT
  Age: 62 Year
  Sex: Female
  Weight: 86.1834 kg

DRUGS (1)
  1. SIMVASTATIN 6/12/08 MEVA [Suspect]
     Indication: BLOOD CHOLESTEROL INCREASED
     Dosage: 20MG 1 TABLET DAILY PO
     Route: 048
     Dates: start: 20070302, end: 20070712

REACTIONS (5)
  - CONTUSION [None]
  - DRY SKIN [None]
  - RASH PRURITIC [None]
  - SKIN DISCOLOURATION [None]
  - URTICARIA [None]
